FAERS Safety Report 4555611-X (Version None)
Quarter: 2005Q1

REPORT INFORMATION
  Report Type: 
  Country: None (occurrence: None)
  Receive Date: 20041228
  Receipt Date: 20031218
  Transmission Date: 20050727
  Serious: Yes (Other)
  Sender: FDA-Public Use
  Company Number: PHEH2003US11584

PATIENT
  Age: 65 Year
  Sex: Female
  Weight: 77.1 kg

DRUGS (14)
  1. AREDIA [Suspect]
     Dosage: 90 MG INTRAVENOUS
     Route: 042
     Dates: start: 20000101, end: 20031218
  2. GASTROCROM [Concomitant]
  3. DOXEPIN HCL [Concomitant]
  4. ATARAX [Concomitant]
  5. CLARITIN [Concomitant]
  6. ZANTAC [Concomitant]
  7. FLURBIPROFEN [Concomitant]
  8. SYNTHROID [Concomitant]
  9. KETOTIFEN [Concomitant]
  10. ATENOLOL [Concomitant]
  11. VALSARTAN [Concomitant]
  12. ATROVENT [Concomitant]
  13. AZMACORT [Concomitant]
  14. CROMOLYN SODIUM [Concomitant]

REACTIONS (1)
  - BLOOD CREATININE ABNORMAL [None]
